FAERS Safety Report 26192015 (Version 2)
Quarter: 2025Q4

REPORT INFORMATION
  Report Type: Spontaneous
  Country: AL (occurrence: AL)
  Receive Date: 20251223
  Receipt Date: 20251230
  Transmission Date: 20260118
  Serious: No
  Sender: BAYER HEALTHCARE PHARMACEUTICALS INC.
  Company Number: AL-BAYER-2025A157356

PATIENT
  Age: 77 Year
  Sex: Male

DRUGS (11)
  1. NUBEQA [Suspect]
     Active Substance: DAROLUTAMIDE
     Indication: Prostate cancer metastatic
     Dosage: 600 MG, BID
     Dates: start: 202410
  2. NUBEQA [Suspect]
     Active Substance: DAROLUTAMIDE
     Indication: Prostate cancer metastatic
     Dosage: 2 TABLETS
  3. NUBEQA [Suspect]
     Active Substance: DAROLUTAMIDE
     Indication: Prostate cancer metastatic
     Dosage: 900 MG DAILY DOSE/3 TABLETS
  4. NUBEQA [Suspect]
     Active Substance: DAROLUTAMIDE
     Indication: Prostate cancer metastatic
     Dosage: 600 MG, BID, FULL DOSE, 4 TABLETS IN SUBSEQUENT WEEKS
  5. DOCETAXEL [Suspect]
     Active Substance: DOCETAXEL
     Dosage: 80 MG, Q3WK
  6. GOSERELIN [Concomitant]
     Active Substance: GOSERELIN
     Dosage: 10.8 MG,EVERY 12 WEEKS. FOR A TOTAL OF 6 CYCLES.
  7. GOSERELIN [Concomitant]
     Active Substance: GOSERELIN
     Dosage: 10.8 MG,EVERY 12 WEEKS. FOR A TOTAL OF 6 CYCLES.
  8. GOSERELIN [Concomitant]
     Active Substance: GOSERELIN
     Dosage: 10.8 MG,EVERY 12 WEEKS. FOR A TOTAL OF 6 CYCLES.
  9. GOSERELIN [Concomitant]
     Active Substance: GOSERELIN
     Dosage: 10.8 MG,EVERY 12 WEEKS. FOR A TOTAL OF 6 CYCLES.
  10. GOSERELIN [Concomitant]
     Active Substance: GOSERELIN
     Dosage: 10.8 MG,EVERY 12 WEEKS. FOR A TOTAL OF 6 CYCLES.
  11. GOSERELIN [Concomitant]
     Active Substance: GOSERELIN
     Dosage: 10.8 MG,EVERY 12 WEEKS. FOR A TOTAL OF 6 CYCLES.

REACTIONS (1)
  - Diarrhoea [Recovered/Resolved]

NARRATIVE: CASE EVENT DATE: 20241001
